FAERS Safety Report 21026867 (Version 1)
Quarter: 2022Q2

REPORT INFORMATION
  Report Type: Spontaneous
  Country: US (occurrence: US)
  Receive Date: 20220630
  Receipt Date: 20220630
  Transmission Date: 20220721
  Serious: Yes (Death, Other)
  Sender: FDA-Public Use
  Company Number: US-BAYER-2022A088673

PATIENT
  Age: 33 Year
  Sex: Female

DRUGS (2)
  1. ASPIRIN [Suspect]
     Active Substance: ASPIRIN
  2. BIVALIRUDIN [Suspect]
     Active Substance: BIVALIRUDIN

REACTIONS (3)
  - Shock haemorrhagic [Fatal]
  - Labelled drug-drug interaction medication error [Fatal]
  - Contraindicated product administered [None]
